FAERS Safety Report 23215476 (Version 1)
Quarter: 2023Q4

REPORT INFORMATION
  Report Type: Spontaneous
  Country: US (occurrence: US)
  Receive Date: 20231122
  Receipt Date: 20231122
  Transmission Date: 20240110
  Serious: No
  Sender: FDA-Public Use
  Company Number: US-SA-SAC20230602001351

PATIENT
  Age: 14 Year
  Sex: Male

DRUGS (1)
  1. FABRAZYME [Suspect]
     Active Substance: AGALSIDASE BETA
     Dosage: UNK
     Route: 065

REACTIONS (3)
  - Globotriaosylceramide increased [Recovering/Resolving]
  - Globotriaosylsphingosine increased [Recovering/Resolving]
  - Drug specific antibody present [Unknown]

NARRATIVE: CASE EVENT DATE: 20230524
